FAERS Safety Report 12237865 (Version 17)
Quarter: 2018Q3

REPORT INFORMATION
  Report Type: Report from Study
  Country: CN (occurrence: CN)
  Receive Date: 20160405
  Receipt Date: 20180918
  Transmission Date: 20181010
  Serious: Yes (Other)
  Sender: FDA-Public Use
  Company Number: PHHY2016CN042853

PATIENT
  Age: 38 Year
  Sex: Male

DRUGS (87)
  1. TACROLIMUS. [Suspect]
     Active Substance: TACROLIMUS
     Indication: PROPHYLAXIS AGAINST TRANSPLANT REJECTION
     Dosage: 4.5 MG, QD
     Route: 065
     Dates: start: 20160224, end: 20160224
  2. TACROLIMUS. [Suspect]
     Active Substance: TACROLIMUS
     Dosage: 5 MG, QD
     Route: 065
     Dates: start: 20160317
  3. PREDNISONE. [Suspect]
     Active Substance: PREDNISONE
     Indication: IMMUNOSUPPRESSANT DRUG THERAPY
     Dosage: 30 MG, QD
     Route: 065
     Dates: start: 20160227, end: 20160227
  4. GLYCERIN. [Concomitant]
     Active Substance: GLYCERIN
     Indication: CONSTIPATION
     Dosage: 1 DF, QD
     Route: 061
     Dates: start: 20160224, end: 20160224
  5. NIFEDIPINE. [Concomitant]
     Active Substance: NIFEDIPINE
     Indication: BLOOD PRESSURE INCREASED
     Dosage: 30 MG, BID
     Route: 048
     Dates: start: 20160226, end: 20160226
  6. REMIFENTANIL HYDROCHLORIDE. [Concomitant]
     Active Substance: REMIFENTANIL HYDROCHLORIDE
     Indication: ANAESTHESIA
     Dosage: 4 MG, QD
     Route: 042
     Dates: start: 20160224, end: 20160224
  7. SODIUM LACTATE. [Concomitant]
     Active Substance: SODIUM LACTATE
     Indication: FLUID REPLACEMENT
     Dosage: 4000 ML, QD
     Route: 042
     Dates: start: 20160224, end: 20160224
  8. SODIUM LACTATE. [Concomitant]
     Active Substance: SODIUM LACTATE
     Dosage: 1000 ML, BID
     Route: 042
     Dates: start: 20160225, end: 20160225
  9. MYFORTIC [Suspect]
     Active Substance: MYCOPHENOLATE SODIUM
     Indication: RENAL TRANSPLANT
     Dosage: 720 MG, QD
     Route: 065
     Dates: start: 20160224, end: 20160224
  10. TACROLIMUS. [Suspect]
     Active Substance: TACROLIMUS
     Dosage: 13.5 MG, QD
     Route: 065
     Dates: start: 20160225, end: 20160225
  11. PREDNISONE. [Suspect]
     Active Substance: PREDNISONE
     Dosage: 5 MG, QD
     Route: 065
     Dates: start: 20160317, end: 20170122
  12. ESOMEPRAZOLE MAGNESIUM. [Concomitant]
     Active Substance: ESOMEPRAZOLE MAGNESIUM
     Indication: INFLAMMATION
     Dosage: 20 MG, QD
     Route: 048
     Dates: start: 20160301
  13. FUROSEMIDE. [Concomitant]
     Active Substance: FUROSEMIDE
     Dosage: 20 MG, BID
     Route: 042
     Dates: start: 20160226, end: 20160226
  14. NIFEDIPINE. [Concomitant]
     Active Substance: NIFEDIPINE
     Dosage: 30 MG, QD
     Route: 048
     Dates: start: 20160226
  15. ROCURONIUM BROMIDE. [Concomitant]
     Active Substance: ROCURONIUM BROMIDE
     Indication: ANAESTHESIA
     Dosage: 100 MG, QD
     Route: 042
     Dates: start: 20160224, end: 20160224
  16. SODIUM LACTATE. [Concomitant]
     Active Substance: SODIUM LACTATE
     Dosage: 1500 ML, QD
     Route: 042
     Dates: start: 20160225, end: 20160225
  17. SUCCINYLATED GELATIN [Concomitant]
     Active Substance: SUCCINYLATED GELATIN
     Indication: ANAESTHESIA
     Dosage: 500 ML, QD
     Route: 042
     Dates: start: 20160224, end: 20160224
  18. TERAZOSIN HYDROCHLORIDE. [Concomitant]
     Active Substance: TERAZOSIN HYDROCHLORIDE
     Indication: BLOOD PRESSURE INCREASED
     Dosage: 2 MG, QD
     Route: 048
     Dates: start: 20160203
  19. MAGNESIUM ISOGLYCYRRHIZINATE [Concomitant]
     Active Substance: MAGNESIUM ISOGLYCYRRHIZINATE
     Indication: HEPATIC FUNCTION ABNORMAL
     Dosage: 100 MG, QD
     Route: 042
     Dates: start: 20160225, end: 20160313
  20. BASILIXIMAB [Suspect]
     Active Substance: BASILIXIMAB
     Indication: RENAL TRANSPLANT
     Dosage: 20 MG, QD
     Route: 065
     Dates: start: 20160224, end: 20160224
  21. TACROLIMUS. [Suspect]
     Active Substance: TACROLIMUS
     Dosage: 11 MG, QD
     Route: 065
     Dates: start: 20160228, end: 20160302
  22. CEFOXITIN SODIUM [Concomitant]
     Active Substance: CEFOXITIN SODIUM
     Indication: BACTERIAL INFECTION
     Dosage: 2 G, BID
     Route: 042
     Dates: start: 20160225, end: 20160306
  23. SULFADIAZINE W/SULFAMETHOXAZOLE/TRIMETHOPRIM [Concomitant]
     Indication: INFECTION
     Dosage: 0.96 G, BID
     Route: 048
     Dates: start: 20160314, end: 20160314
  24. GENTAMICIN SULFATE. [Concomitant]
     Active Substance: GENTAMICIN SULFATE
     Dosage: 16 WIU, TID
     Route: 042
     Dates: start: 20160224, end: 20160224
  25. MYFORTIC [Suspect]
     Active Substance: MYCOPHENOLATE SODIUM
     Dosage: 1080 MG, QD
     Route: 048
     Dates: start: 20160328
  26. BASILIXIMAB [Suspect]
     Active Substance: BASILIXIMAB
     Indication: PROPHYLAXIS AGAINST TRANSPLANT REJECTION
     Dosage: 20 MG, QD
     Route: 065
     Dates: start: 20160228, end: 20160228
  27. TACROLIMUS. [Suspect]
     Active Substance: TACROLIMUS
     Dosage: 10 MG, QD
     Route: 065
     Dates: start: 20160227, end: 20160227
  28. TACROLIMUS. [Suspect]
     Active Substance: TACROLIMUS
     Dosage: 8 MG, QD
     Route: 065
     Dates: start: 20160304, end: 20160312
  29. TACROLIMUS. [Suspect]
     Active Substance: TACROLIMUS
     Dosage: 13 MG, QD
     Route: 065
     Dates: start: 20160314, end: 20160314
  30. ESOMEPRAZOLE MAGNESIUM. [Concomitant]
     Active Substance: ESOMEPRAZOLE MAGNESIUM
     Dosage: 1 DF, QD
     Route: 048
     Dates: start: 20160321
  31. FUROSEMIDE. [Concomitant]
     Active Substance: FUROSEMIDE
     Dosage: 20 MG, QD
     Route: 042
     Dates: start: 20160227, end: 20160302
  32. GANCICLOVIR. [Concomitant]
     Active Substance: GANCICLOVIR
     Indication: INFECTION PROPHYLAXIS
     Dosage: 1 G, TID
     Route: 048
     Dates: start: 20160313, end: 20160504
  33. INSULIN [Concomitant]
     Active Substance: INSULIN NOS
     Indication: BLOOD GLUCOSE INCREASED
     Dosage: 6 U, (6 TIMES A DAY)
     Route: 042
     Dates: start: 20160225, end: 20160225
  34. ISOSORBIDE MONONITRATE. [Concomitant]
     Active Substance: ISOSORBIDE MONONITRATE
     Indication: CARDIAC DISORDER
     Dosage: 50 MG, QD
     Route: 042
     Dates: start: 20160225, end: 20160225
  35. NIFEDIPINE. [Concomitant]
     Active Substance: NIFEDIPINE
     Dosage: 10 MG, QD
     Route: 048
     Dates: start: 20160304, end: 20160304
  36. SODIUM BICARBONATE. [Concomitant]
     Active Substance: SODIUM BICARBONATE
     Indication: ANTACID THERAPY
     Dosage: 0.5 G, TID
     Route: 048
     Dates: start: 20160314, end: 20161027
  37. SODIUM LACTATE. [Concomitant]
     Active Substance: SODIUM LACTATE
     Dosage: 500 ML, QD
     Route: 042
     Dates: start: 20160225, end: 20160227
  38. TRAMADOL HYDROCHLORIDE. [Concomitant]
     Active Substance: TRAMADOL HYDROCHLORIDE
     Indication: ANAESTHESIA
     Dosage: 200 MG, QD
     Route: 042
     Dates: start: 20160224, end: 20160224
  39. MYFORTIC [Suspect]
     Active Substance: MYCOPHENOLATE SODIUM
     Dosage: 1440 MG, QD
     Route: 065
     Dates: start: 20160225, end: 20160225
  40. TACROLIMUS. [Suspect]
     Active Substance: TACROLIMUS
     Dosage: 17 MG, QD
     Route: 065
     Dates: start: 20160303, end: 20160303
  41. AMBROXOL HYDROCHLORIDE [Concomitant]
     Active Substance: AMBROXOL HYDROCHLORIDE
     Indication: INFECTION
     Dosage: 30 MG, BID
     Route: 042
     Dates: start: 20160226, end: 20160302
  42. DIPHENHYDRAMINE HYDROCHLORIDE. [Concomitant]
     Active Substance: DIPHENHYDRAMINE HYDROCHLORIDE
     Indication: VOMITING
     Dosage: 20 MG, QD
     Route: 030
     Dates: start: 20160307, end: 20160307
  43. FELODIPINE. [Concomitant]
     Active Substance: FELODIPINE
     Dosage: 5 MG, BID
     Route: 048
     Dates: start: 20160227
  44. FUROSEMIDE. [Concomitant]
     Active Substance: FUROSEMIDE
     Dosage: 20 MG, QD
     Route: 042
     Dates: start: 20160306, end: 20180314
  45. FUROSEMIDE. [Concomitant]
     Active Substance: FUROSEMIDE
     Indication: DIURETIC THERAPY
     Dosage: 20 MG, BID
     Route: 048
     Dates: start: 20160314, end: 20160314
  46. HEPARIN SODIUM. [Concomitant]
     Active Substance: HEPARIN SODIUM
     Indication: DEVICE ISSUE
     Dosage: 3750 U, QD
     Route: 061
     Dates: start: 20160224, end: 20160224
  47. HEPARIN SODIUM. [Concomitant]
     Active Substance: HEPARIN SODIUM
     Dosage: 3750 U, QD
     Route: 061
     Dates: start: 20160310, end: 20160310
  48. NIFEDIPINE. [Concomitant]
     Active Substance: NIFEDIPINE
     Dosage: 10 MG, QD
     Route: 048
     Dates: start: 20160226, end: 20160226
  49. NORADRENALIN//NOREPINEPHRINE BITARTRATE [Concomitant]
     Indication: BLOOD PRESSURE DECREASED
     Dosage: 2 MG, QD
     Route: 042
     Dates: start: 20160224, end: 20160224
  50. PANTOPRAZOLE SODIUM. [Concomitant]
     Active Substance: PANTOPRAZOLE SODIUM
     Indication: GASTRIC PH DECREASED
     Dosage: 2 G, QD
     Route: 042
     Dates: start: 20160225, end: 20160225
  51. RECOMBINANT HUMAN ERYTHROPOIETIN [Concomitant]
     Active Substance: ERYTHROPOIETIN
     Indication: PLATELET DISORDER
     Dosage: 4000 IU, QD
     Route: 058
     Dates: start: 20160305, end: 20160306
  52. PROPOFOL. [Concomitant]
     Active Substance: PROPOFOL
     Indication: ANAESTHESIA
     Dosage: 200 MG, QD
     Route: 030
     Dates: start: 20160224, end: 20160224
  53. CEFUROXIME AXETIL. [Concomitant]
     Active Substance: CEFUROXIME AXETIL
     Indication: INFECTION
     Dosage: 0.25 MG, BID
     Route: 048
     Dates: start: 20160411
  54. TACROLIMUS. [Suspect]
     Active Substance: TACROLIMUS
     Dosage: 11 MG, QD
     Route: 065
     Dates: start: 20160226, end: 20160226
  55. TACROLIMUS. [Suspect]
     Active Substance: TACROLIMUS
     Dosage: 1 MG, QD
     Route: 065
     Dates: start: 20160313, end: 20160313
  56. PREDNISONE. [Suspect]
     Active Substance: PREDNISONE
     Dosage: 17 MG, QD
     Route: 065
     Dates: start: 20170123
  57. ATROPINE SULATE [Concomitant]
     Active Substance: ATROPINE SULFATE
     Indication: SHOCK
     Dosage: 1 MG, QD
     Route: 058
     Dates: start: 20160224, end: 20160224
  58. CEFDINIR. [Concomitant]
     Active Substance: CEFDINIR
     Indication: INFECTION
     Dosage: 100 MG, TID
     Route: 048
     Dates: start: 20160314, end: 20160314
  59. CEFOXITIN SODIUM [Concomitant]
     Active Substance: CEFOXITIN SODIUM
     Indication: INFECTION
     Dosage: 2 G, QD
     Route: 065
     Dates: start: 20160224, end: 20160224
  60. GENTAMICIN SULFATE. [Concomitant]
     Active Substance: GENTAMICIN SULFATE
     Indication: PRODUCT USED FOR UNKNOWN INDICATION
     Dosage: 10000 U, TID
     Route: 042
     Dates: start: 20160224, end: 20160224
  61. HYDROXYETHYLSTARCH [Concomitant]
     Active Substance: HETASTARCH
     Indication: FLUID REPLACEMENT
     Dosage: 500 ML, QD
     Route: 042
     Dates: start: 20160224, end: 20160225
  62. INSULIN [Concomitant]
     Active Substance: INSULIN NOS
     Dosage: 6 U, QD
     Route: 042
     Dates: start: 20160226, end: 20160227
  63. NEOSTIGMINE METHYLSULFATE. [Concomitant]
     Active Substance: NEOSTIGMINE METHYLSULFATE
     Indication: ANAESTHESIA
     Dosage: 2 MG, QD
     Route: 042
     Dates: start: 20160224, end: 20160224
  64. RECOMBINANT HUMAN ERYTHROPOIETIN [Concomitant]
     Active Substance: ERYTHROPOIETIN
     Dosage: 4000 IU, QD
     Route: 042
     Dates: start: 20160309, end: 20160310
  65. SUFENTANIL CITRATE. [Concomitant]
     Active Substance: SUFENTANIL CITRATE
     Indication: ANAESTHESIA
     Dosage: 150 UG, QD
     Route: 042
     Dates: start: 20160224, end: 20160224
  66. TOLTERODINE TARTRATE. [Concomitant]
     Active Substance: TOLTERODINE TARTRATE
     Indication: BLOOD PRESSURE INCREASED
     Dosage: 4 MG, QD
     Route: 048
     Dates: start: 20160308, end: 20160308
  67. MYFORTIC [Suspect]
     Active Substance: MYCOPHENOLATE SODIUM
     Dosage: 1440 MG, QD
     Route: 048
     Dates: start: 20160226, end: 20160327
  68. METHYLPREDNISOLONE. [Suspect]
     Active Substance: METHYLPREDNISOLONE
     Indication: PROPHYLAXIS AGAINST TRANSPLANT REJECTION
     Dosage: 500 MG, QD
     Route: 065
     Dates: start: 20160224, end: 20160224
  69. METHYLPREDNISOLONE. [Suspect]
     Active Substance: METHYLPREDNISOLONE
     Dosage: 500 MG, QD
     Route: 065
     Dates: start: 20160302, end: 20160302
  70. PREDNISONE. [Suspect]
     Active Substance: PREDNISONE
     Dosage: 30 MG, QD
     Route: 065
     Dates: start: 20160228, end: 20160316
  71. BACILLUS LICHENFORMIS [Concomitant]
     Indication: DIARRHOEA
     Dosage: 0.25 G, TID
     Route: 048
     Dates: start: 20160301, end: 20160313
  72. FELODIPINE. [Concomitant]
     Active Substance: FELODIPINE
     Dosage: 10 MG, BID
     Route: 048
     Dates: start: 20160314, end: 20160314
  73. HEPARIN SODIUM. [Concomitant]
     Active Substance: HEPARIN SODIUM
     Dosage: 3750 U, QD
     Route: 061
     Dates: start: 20160301, end: 20160301
  74. MIDAZOLAM [Concomitant]
     Active Substance: MIDAZOLAM HYDROCHLORIDE
     Indication: ANAESTHESIA
     Dosage: 5 MG, QD
     Route: 030
     Dates: start: 20160224, end: 20160224
  75. NIFEDIPINE. [Concomitant]
     Active Substance: NIFEDIPINE
     Dosage: 10 MG, QD
     Route: 048
     Dates: start: 20160301, end: 20160301
  76. SMECTITE [Concomitant]
     Active Substance: MONTMORILLONITE
     Indication: DIARRHOEA
     Dosage: 3 MG, QD
     Route: 048
     Dates: start: 20160301, end: 20160301
  77. METHYLPREDNISOLONE. [Suspect]
     Active Substance: METHYLPREDNISOLONE
     Dosage: 500 MG, QD
     Route: 065
     Dates: start: 20160227, end: 20160302
  78. ALPROSTADIL. [Concomitant]
     Active Substance: ALPROSTADIL
     Indication: THROMBOSIS
     Dosage: 10 UG, QD
     Route: 042
     Dates: start: 20160302
  79. FELODIPINE. [Concomitant]
     Active Substance: FELODIPINE
     Indication: BLOOD PRESSURE INCREASED
     Dosage: 5 MG, QD
     Route: 048
     Dates: start: 20160226, end: 20160226
  80. FUROSEMIDE. [Concomitant]
     Active Substance: FUROSEMIDE
     Indication: DIURETIC THERAPY
     Dosage: 80 MG, QD
     Route: 042
     Dates: start: 20160224, end: 20160224
  81. FUROSEMIDE. [Concomitant]
     Active Substance: FUROSEMIDE
     Dosage: 20 MG, QD
     Route: 042
     Dates: start: 20160225, end: 20160225
  82. LIDOCAINE HYDROCHLORIDE. [Concomitant]
     Active Substance: LIDOCAINE HYDROCHLORIDE
     Indication: ANAESTHESIA
     Dosage: 10 ML, QD
     Route: 030
     Dates: start: 20160224, end: 20160224
  83. MANNITOL. [Concomitant]
     Active Substance: MANNITOL
     Indication: DIURETIC THERAPY
     Dosage: 250 ML, QD
     Route: 030
     Dates: start: 20160224, end: 20160224
  84. PANTOPRAZOLE SODIUM. [Concomitant]
     Active Substance: PANTOPRAZOLE SODIUM
     Dosage: 40 MG, BID
     Route: 042
     Dates: start: 20160225, end: 20160225
  85. PANTOPRAZOLE SODIUM. [Concomitant]
     Active Substance: PANTOPRAZOLE SODIUM
     Dosage: 40 G, BID
     Route: 042
     Dates: start: 20160225, end: 20160313
  86. TORASEMIDE [Concomitant]
     Active Substance: TORSEMIDE
     Indication: DIURETIC THERAPY
     Dosage: 10 MG, QD
     Route: 042
     Dates: start: 20160313, end: 20160313
  87. TROPISETRON HYDROCHLORIDE [Concomitant]
     Active Substance: TROPISETRON HYDROCHLORIDE
     Indication: ANAESTHESIA
     Dosage: 15 MG, QD
     Route: 042
     Dates: start: 20160224, end: 20160224

REACTIONS (8)
  - Gastritis [Recovered/Resolved]
  - High density lipoprotein decreased [Recovered/Resolved]
  - Haemoglobin decreased [Unknown]
  - Vision blurred [Unknown]
  - Blood urea increased [Unknown]
  - Lymphocyte count decreased [Unknown]
  - Platelet count decreased [Unknown]
  - Blood glucose increased [Recovering/Resolving]

NARRATIVE: CASE EVENT DATE: 20160226
